FAERS Safety Report 24684154 (Version 1)
Quarter: 2024Q4

REPORT INFORMATION
  Report Type: Spontaneous
  Country: CA (occurrence: CA)
  Receive Date: 20241202
  Receipt Date: 20241202
  Transmission Date: 20250114
  Serious: Yes (Other)
  Sender: AMGEN
  Company Number: CA-AMGEN-CANSP2024232817

PATIENT
  Age: 80 Year
  Sex: Female

DRUGS (1)
  1. RITUXIMAB [Suspect]
     Active Substance: RITUXIMAB
     Indication: Rosai-Dorfman syndrome
     Dosage: UNK
     Route: 065

REACTIONS (2)
  - Rosai-Dorfman syndrome [Unknown]
  - Off label use [Unknown]
